FAERS Safety Report 20990181 (Version 1)
Quarter: 2022Q2

REPORT INFORMATION
  Report Type: Spontaneous
  Country: GB (occurrence: GB)
  Receive Date: 20220621
  Receipt Date: 20220621
  Transmission Date: 20220720
  Serious: Yes (Other)
  Sender: FDA-Public Use
  Company Number: GB-SUN PHARMACEUTICAL INDUSTRIES LTD-2022RR-341507

PATIENT
  Age: 16 Year
  Sex: Female

DRUGS (3)
  1. ASPIRIN [Suspect]
     Active Substance: ASPIRIN
     Indication: Cerebral ischaemia
     Dosage: 75 MILLIGRAM, DAILY
     Route: 065
  2. HEPARIN [Suspect]
     Active Substance: HEPARIN SODIUM
     Indication: Cerebral ischaemia
     Dosage: 175 UNITS/KG, QD
     Route: 042
  3. HEPARIN [Suspect]
     Active Substance: HEPARIN SODIUM
     Dosage: 120 UNITS/KG, BID
     Route: 042

REACTIONS (1)
  - Disease recurrence [Unknown]
